FAERS Safety Report 12110913 (Version 1)
Quarter: 2016Q1

REPORT INFORMATION
  Report Type: Spontaneous
  Country: CH (occurrence: CH)
  Receive Date: 20160224
  Receipt Date: 20160224
  Transmission Date: 20160526
  Serious: Yes (Death, Hospitalization)
  Sender: FDA-Public Use
  Company Number: CH-TEVA-635450ISR

PATIENT
  Age: 56 Year
  Sex: Male

DRUGS (7)
  1. DOBUTAMINE [Suspect]
     Active Substance: DOBUTAMINE\DOBUTAMINE HYDROCHLORIDE
     Dosage: HIGH DOSE
     Route: 065
  2. NOREPINEPHRINE [Suspect]
     Active Substance: NOREPINEPHRINE\NOREPINEPHRINE BITARTRATE
     Route: 065
  3. AMIODARONE [Suspect]
     Active Substance: AMIODARONE
     Route: 065
  4. PIPERACILLIN AND TAZOBACTAM [Suspect]
     Active Substance: PIPERACILLIN SODIUM\TAZOBACTAM SODIUM
     Route: 065
  5. VORICONAZOLE. [Suspect]
     Active Substance: VORICONAZOLE
     Route: 065
  6. MEROPENEM. [Suspect]
     Active Substance: MEROPENEM
     Indication: ANTIBIOTIC THERAPY
     Route: 065
  7. OSELTAMIVIR [Concomitant]
     Active Substance: OSELTAMIVIR
     Indication: ANTIVIRAL TREATMENT
     Route: 065

REACTIONS (13)
  - Upper gastrointestinal haemorrhage [Unknown]
  - Delirium [Unknown]
  - Polyneuropathy [Unknown]
  - Bronchopulmonary aspergillosis [Fatal]
  - Disorientation [Unknown]
  - Atrial flutter [Unknown]
  - Renal failure [Unknown]
  - Compartment syndrome [Unknown]
  - Decubitus ulcer [Unknown]
  - Pulmonary haemorrhage [Unknown]
  - Rhabdomyolysis [Unknown]
  - Viral myositis [Unknown]
  - Anaemia [Unknown]

NARRATIVE: CASE EVENT DATE: 2015
